FAERS Safety Report 8608163 (Version 3)
Quarter: 2014Q1

REPORT INFORMATION
  Report Type: Spontaneous
  Country: US (occurrence: US)
  Receive Date: 20120611
  Receipt Date: 20140108
  Transmission Date: 20141002
  Serious: Yes (Other)
  Sender: FDA-Public Use
  Company Number: US-ASTRAZENECA-2012SE35590

PATIENT
  Age: 556 Month
  Sex: Male
  Weight: 89.8 kg

DRUGS (15)
  1. NEXIUM [Suspect]
     Indication: GASTROOESOPHAGEAL REFLUX DISEASE
     Dosage: 20 TO 40 MG, TWO TIMES A DAY
     Route: 048
     Dates: start: 1999, end: 2012
  2. NEXIUM [Suspect]
     Indication: FLATULENCE
     Dosage: 20 TO 40 MG, TWO TIMES A DAY
     Route: 048
     Dates: start: 1999, end: 2012
  3. NEXIUM [Suspect]
     Indication: DYSPEPSIA
     Dosage: 20 TO 40 MG, TWO TIMES A DAY
     Route: 048
     Dates: start: 1999, end: 2012
  4. NEXIUM [Suspect]
     Indication: GASTROINTESTINAL DISORDER
     Dosage: 20 TO 40 MG, TWO TIMES A DAY
     Route: 048
     Dates: start: 1999, end: 2012
  5. NEXIUM [Suspect]
     Indication: GASTROOESOPHAGEAL REFLUX DISEASE
     Route: 048
     Dates: start: 20040308
  6. NEXIUM [Suspect]
     Indication: FLATULENCE
     Route: 048
     Dates: start: 20040308
  7. NEXIUM [Suspect]
     Indication: DYSPEPSIA
     Route: 048
     Dates: start: 20040308
  8. NEXIUM [Suspect]
     Indication: GASTROINTESTINAL DISORDER
     Route: 048
     Dates: start: 20040308
  9. NEXIUM [Suspect]
     Indication: GASTROOESOPHAGEAL REFLUX DISEASE
     Route: 048
     Dates: start: 200407, end: 200908
  10. NEXIUM [Suspect]
     Indication: FLATULENCE
     Route: 048
     Dates: start: 200407, end: 200908
  11. NEXIUM [Suspect]
     Indication: DYSPEPSIA
     Route: 048
     Dates: start: 200407, end: 200908
  12. NEXIUM [Suspect]
     Indication: GASTROINTESTINAL DISORDER
     Route: 048
     Dates: start: 200407, end: 200908
  13. TYLENOL [Concomitant]
     Dosage: AT NIGHT
  14. FLAGYL [Concomitant]
  15. AMBIEN [Concomitant]

REACTIONS (17)
  - Bone neoplasm [Unknown]
  - Osteoporosis [Unknown]
  - Systemic lupus erythematosus [Unknown]
  - Multiple fractures [Unknown]
  - Adrenal insufficiency [Unknown]
  - Rheumatoid arthritis [Unknown]
  - Arthropathy [Unknown]
  - Bone loss [Unknown]
  - Carpal tunnel syndrome [Unknown]
  - Calcium deficiency [Unknown]
  - Vitamin D deficiency [Unknown]
  - Bone disorder [Unknown]
  - Aortic disorder [Unknown]
  - Arthritis [Unknown]
  - Chronic obstructive pulmonary disease [Unknown]
  - Type 2 diabetes mellitus [Unknown]
  - Depression [Unknown]
